FAERS Safety Report 18294160 (Version 1)
Quarter: 2020Q3

REPORT INFORMATION
  Report Type: Other
  Country: UA (occurrence: UA)
  Receive Date: 20200922
  Receipt Date: 20200922
  Transmission Date: 20201103
  Serious: Yes (Life-Threatening, Hospitalization, Other)
  Sender: FDA-Public Use
  Company Number: UA-APTAPHARMA INC.-2091010

PATIENT
  Age: 11 Year
  Sex: Male

DRUGS (2)
  1. IBUPROFEN. [Suspect]
     Active Substance: IBUPROFEN
     Indication: PYREXIA
     Route: 065
  2. STREPTOCIDE [SULFANILAMIDE] [Suspect]
     Active Substance: SULFANILAMIDE
     Route: 061

REACTIONS (1)
  - Stevens-Johnson syndrome [Recovered/Resolved]
